FAERS Safety Report 9028484 (Version 1)
Quarter: 2013Q1

REPORT INFORMATION
  Report Type: Report from Study
  Country: TW (occurrence: TW)
  Receive Date: 20130124
  Receipt Date: 20130124
  Transmission Date: 20140127
  Serious: Yes (Death)
  Sender: FDA-Public Use
  Company Number: TW-SANOFI-AVENTIS-2013SA004595

PATIENT
  Sex: 0

DRUGS (4)
  1. CISPLATIN [Suspect]
     Indication: BREAST CANCER METASTATIC
     Route: 042
  2. DOCETAXEL [Suspect]
     Indication: BREAST CANCER METASTATIC
     Route: 042
  3. BEVACIZUMAB [Suspect]
     Indication: BREAST CANCER METASTATIC
     Dosage: 60 MINUTE INFUSION AS LOADING DOSE.
     Route: 042
  4. BEVACIZUMAB [Suspect]
     Indication: BREAST CANCER METASTATIC
     Dosage: 30 MINUTE INFUSION.
     Route: 042

REACTIONS (1)
  - Haematuria [Fatal]
